FAERS Safety Report 6182816-7 (Version None)
Quarter: 2009Q2

REPORT INFORMATION
  Report Type: 
  Country: None (occurrence: None)
  Receive Date: 20090507
  Receipt Date: 20090424
  Transmission Date: 20091009
  Serious: Yes (Hospitalization, Other)
  Sender: FDA-Public Use
  Company Number: JP-PFIZER INC-2008016611

PATIENT

DRUGS (5)
  1. ZOLOFT [Suspect]
     Route: 048
     Dates: start: 20080207, end: 20080220
  2. PEROSPIRONE HYDROCHLORIDE [Concomitant]
     Route: 048
     Dates: start: 20051201, end: 20080204
  3. EXCEGRAN [Concomitant]
     Route: 048
     Dates: start: 20060801
  4. TOPIRAMATE [Concomitant]
     Route: 048
  5. RISPERDAL [Concomitant]
     Route: 048
     Dates: start: 20080220

REACTIONS (6)
  - ACTIVATION SYNDROME [None]
  - AFFECT LABILITY [None]
  - DELIRIUM [None]
  - IDEAS OF REFERENCE [None]
  - IMPULSIVE BEHAVIOUR [None]
  - SELF INJURIOUS BEHAVIOUR [None]
